FAERS Safety Report 5984193-0 (Version None)
Quarter: 2008Q4

REPORT INFORMATION
  Report Type: 
  Country: None (occurrence: None)
  Receive Date: 20081208
  Receipt Date: 20081126
  Transmission Date: 20090506
  Serious: Yes (Death, Hospitalization)
  Sender: FDA-Public Use
  Company Number: US-AMGEN-US314743

PATIENT
  Sex: Male

DRUGS (2)
  1. ENBREL [Suspect]
     Indication: PSORIASIS
     Route: 058
     Dates: start: 20070101, end: 20080127
  2. RAPTIVA [Concomitant]
     Indication: PSORIASIS
     Route: 058
     Dates: start: 20050223, end: 20070111

REACTIONS (8)
  - BRAIN HERNIATION [None]
  - COMA [None]
  - ENCEPHALITIS [None]
  - INTRACRANIAL PRESSURE INCREASED [None]
  - MENINGITIS VIRAL [None]
  - OPPORTUNISTIC INFECTION [None]
  - PSORIASIS [None]
  - SUBARACHNOID HAEMORRHAGE [None]
